FAERS Safety Report 4700083-5 (Version None)
Quarter: 2005Q2

REPORT INFORMATION
  Report Type: 
  Country: None (occurrence: None)
  Receive Date: 20050623
  Receipt Date: 20050609
  Transmission Date: 20051028
  Serious: Yes (Life-Threatening, Hospitalization)
  Sender: FDA-Public Use
  Company Number: 200416078BCC

PATIENT
  Age: 75 Year
  Sex: Female
  Weight: 55.3388 kg

DRUGS (14)
  1. ALEVE [Suspect]
     Indication: DEMENTIA ALZHEIMER'S TYPE
     Dosage: BID, ORAL
     Route: 048
     Dates: start: 20041018, end: 20041204
  2. ALEVE [Suspect]
     Indication: PROPHYLAXIS
     Dosage: BID, ORAL
     Route: 048
     Dates: start: 20041018, end: 20041204
  3. SPIROLACTONE [Concomitant]
  4. FUROSEMIDE [Concomitant]
  5. ACCUPRIL [Concomitant]
  6. LANOXIN [Concomitant]
  7. COREG [Concomitant]
  8. LIPITOR [Concomitant]
  9. NEURONTIN [Concomitant]
  10. CARBATROL [Concomitant]
  11. ASPIRIN [Concomitant]
  12. MULTI-VITAMINS [Concomitant]
  13. CALTRATE D [Concomitant]
  14. MAGNESIUM [Concomitant]

REACTIONS (5)
  - CHEST DISCOMFORT [None]
  - DIZZINESS [None]
  - FATIGUE [None]
  - MALAISE [None]
  - VENTRICULAR ARRHYTHMIA [None]
